FAERS Safety Report 14376107 (Version 1)
Quarter: 2018Q1

REPORT INFORMATION
  Report Type: Spontaneous
  Country: US (occurrence: US)
  Receive Date: 20180111
  Receipt Date: 20180111
  Transmission Date: 20180509
  Serious: Yes (Hospitalization)
  Sender: FDA-Public Use
  Company Number: US-NAPPMUNDI-USA-2017-0142092

PATIENT
  Age: 60 Year
  Sex: Female

DRUGS (1)
  1. BUTRANS [Suspect]
     Active Substance: BUPRENORPHINE
     Indication: SPINAL PAIN
     Dosage: 20 MCG/HR, WEEKLY
     Route: 062
     Dates: start: 201612

REACTIONS (9)
  - Procedural pain [Unknown]
  - Drug administration error [Unknown]
  - Drug effect decreased [Unknown]
  - Application site pain [Recovered/Resolved]
  - Wrong technique in product usage process [Recovered/Resolved]
  - Application site rash [Recovered/Resolved]
  - Knee arthroplasty [Not Recovered/Not Resolved]
  - Application site pruritus [Recovered/Resolved]
  - Product adhesion issue [Recovered/Resolved]

NARRATIVE: CASE EVENT DATE: 201710
